FAERS Safety Report 22115596 (Version 2)
Quarter: 2023Q2

REPORT INFORMATION
  Report Type: Report from Study
  Country: US (occurrence: US)
  Receive Date: 20230320
  Receipt Date: 20230412
  Transmission Date: 20230721
  Serious: Yes (Hospitalization)
  Sender: FDA-Public Use
  Company Number: US-JNJFOC-20230251909

PATIENT
  Age: 21 Year
  Sex: Female
  Weight: 39.4 kg

DRUGS (3)
  1. INFLIXIMAB [Suspect]
     Active Substance: INFLIXIMAB
     Indication: Crohn^s disease
     Route: 041
     Dates: start: 20130920, end: 20131122
  2. ERGOCALCIFEROL [Concomitant]
     Active Substance: ERGOCALCIFEROL
     Route: 065
  3. STELARA [Concomitant]
     Active Substance: USTEKINUMAB
     Dates: start: 202207

REACTIONS (2)
  - Malnutrition [Recovered/Resolved]
  - Abnormal loss of weight [Recovered/Resolved]

NARRATIVE: CASE EVENT DATE: 20230107
